FAERS Safety Report 8218217-7 (Version None)
Quarter: 2012Q1

REPORT INFORMATION
  Report Type: 
  Country: None (occurrence: None)
  Receive Date: 20120319
  Receipt Date: 20120314
  Transmission Date: 20120608
  Serious: Yes (Hospitalization, Other)
  Sender: FDA-Public Use
  Company Number: GT-ROCHE-1044380

PATIENT
  Sex: Male

DRUGS (4)
  1. XELODA [Suspect]
     Indication: PANCREATIC CARCINOMA
     Route: 048
     Dates: start: 20110923
  2. FLUCONAZOLE [Concomitant]
  3. TARCEVA [Suspect]
     Indication: PANCREATIC CARCINOMA
     Route: 042
     Dates: start: 20120126
  4. RABEPRAZOLE SODIUM [Concomitant]

REACTIONS (4)
  - HAEMORRHAGE [None]
  - OESOPHAGEAL CANDIDIASIS [None]
  - DIARRHOEA [None]
  - METABOLIC ACIDOSIS [None]
